FAERS Safety Report 9865170 (Version 1)
Quarter: 2014Q1

REPORT INFORMATION
  Report Type: Spontaneous
  Country: IT (occurrence: IT)
  Receive Date: 20140203
  Receipt Date: 20140203
  Transmission Date: 20141002
  Serious: Yes (Other)
  Sender: FDA-Public Use
  Company Number: PHHY2014IT011645

PATIENT
  Sex: 0
  Weight: 2.4 kg

DRUGS (2)
  1. ESCITALOPRAM [Suspect]
     Dosage: MATERNAL DOSE: 10 MG, DAILY
     Route: 064
  2. ALPRAZOLAM [Suspect]
     Dosage: MATERNAL DOSE: 0.25 MG DAILY
     Route: 064

REACTIONS (2)
  - Low birth weight baby [Unknown]
  - Foetal exposure during pregnancy [Unknown]
